FAERS Safety Report 16618814 (Version 1)
Quarter: 2019Q3

REPORT INFORMATION
  Report Type: Spontaneous
  Country: ML (occurrence: ML)
  Receive Date: 20190723
  Receipt Date: 20190723
  Transmission Date: 20191004
  Serious: Yes (Other)
  Sender: FDA-Public Use
  Company Number: PHHY2019ML169276

PATIENT
  Age: 4 Year
  Sex: Male

DRUGS (2)
  1. CURAM [Suspect]
     Active Substance: AMOXICILLIN\CLAVULANATE POTASSIUM
     Indication: TONSILLITIS
     Dosage: 1 G, QD
     Route: 042
  2. BRUFEN [Concomitant]
     Active Substance: IBUPROFEN
     Indication: PRODUCT USED FOR UNKNOWN INDICATION
     Dosage: 5 ML, TID
     Route: 065

REACTIONS (1)
  - Inappropriate schedule of product administration [Recovered/Resolved]
